FAERS Safety Report 23190186 (Version 1)
Quarter: 2023Q4

REPORT INFORMATION
  Report Type: Spontaneous
  Country: PA (occurrence: PA)
  Receive Date: 20231116
  Receipt Date: 20231116
  Transmission Date: 20240110
  Serious: Yes (Hospitalization, Other)
  Sender: FDA-Public Use
  Company Number: PA-002147023-NVSC2023PA013748

PATIENT
  Age: 32 Year
  Sex: Female

DRUGS (5)
  1. ANASTROZOLE [Suspect]
     Active Substance: ANASTROZOLE
     Indication: Product used for unknown indication
     Dosage: UNK
     Route: 065
  2. KISQALI [Suspect]
     Active Substance: RIBOCICLIB
     Dosage: 200 MG, QD
     Route: 048
     Dates: start: 202301, end: 20231105
  3. KISQALI [Suspect]
     Active Substance: RIBOCICLIB
     Indication: Breast cancer metastatic
     Dosage: 600 MG, QD
     Route: 048
     Dates: start: 202212, end: 202305
  4. KISQALI [Suspect]
     Active Substance: RIBOCICLIB
     Dosage: 600 MG, QD
     Route: 048
     Dates: start: 202304, end: 202305
  5. KISQALI [Suspect]
     Active Substance: RIBOCICLIB
     Dosage: 600 MG, QD (3 DOSAGE FORMS) (02- MAY2023 OR 03- MAY-2023)
     Route: 048
     Dates: start: 20230113

REACTIONS (18)
  - Femur fracture [Unknown]
  - Impaired healing [Unknown]
  - Arthralgia [Unknown]
  - Fall [Unknown]
  - Hip fracture [Unknown]
  - Back pain [Unknown]
  - Breast enlargement [Unknown]
  - Brain neoplasm [Recovering/Resolving]
  - Metastases to central nervous system [Unknown]
  - Discomfort [Unknown]
  - Spinal pain [Unknown]
  - Gait disturbance [Unknown]
  - Pain [Unknown]
  - Pain in extremity [Unknown]
  - Malaise [Unknown]
  - Dizziness [Unknown]
  - Vomiting [Unknown]
  - Nausea [Unknown]

NARRATIVE: CASE EVENT DATE: 20230126
